FAERS Safety Report 6694174-X (Version None)
Quarter: 2010Q2

REPORT INFORMATION
  Report Type: 
  Country: None (occurrence: None)
  Receive Date: 20100423
  Receipt Date: 20100408
  Transmission Date: 20101027
  Serious: Yes (Hospitalization)
  Sender: FDA-Public Use
  Company Number: US-ROCHE-689474

PATIENT
  Sex: Male
  Weight: 74.8 kg

DRUGS (13)
  1. BEVACIZUMAB [Suspect]
     Indication: NON-SMALL CELL LUNG CANCER
     Route: 042
     Dates: start: 20100104, end: 20100218
  2. PACLITAXEL [Suspect]
     Indication: NON-SMALL CELL LUNG CANCER
     Route: 042
     Dates: start: 20100104, end: 20100218
  3. CARBOPLATIN [Suspect]
     Indication: NON-SMALL CELL LUNG CANCER
     Route: 042
     Dates: start: 20100104, end: 20100218
  4. MORPHINE [Concomitant]
  5. FENTANYL [Concomitant]
  6. LISINOPRIL [Concomitant]
  7. SIMVASTATIN [Concomitant]
  8. ASPIRIN [Concomitant]
  9. METFORMIN [Concomitant]
  10. ALBUTEROL [Concomitant]
     Dates: start: 20100112
  11. COMPAZINE [Concomitant]
     Dates: start: 20100104
  12. ZOFRAN [Concomitant]
     Dates: start: 20100104
  13. BENADRYL [Concomitant]
     Dates: start: 20100206, end: 20100207

REACTIONS (1)
  - DYSPNOEA [None]
